FAERS Safety Report 8590825 (Version 3)
Quarter: 2012Q4

REPORT INFORMATION
  Report Type: 
  Country: CA (occurrence: CA)
  Receive Date: 20120601
  Receipt Date: 20121221
  Transmission Date: 20130627
  Serious: Yes (Other)
  Sender: FDA-Public Use
  Company Number: CA-JNJFOC-20120518164

PATIENT
  Age: 36 None
  Sex: Male
  Weight: 79 kg

DRUGS (4)
  1. REMICADE [Suspect]
     Indication: CROHN^S DISEASE
     Route: 042
     Dates: start: 201009
  2. REMICADE [Suspect]
     Indication: CROHN^S DISEASE
     Route: 042
     Dates: start: 20100927
  3. REMICADE [Suspect]
     Indication: CROHN^S DISEASE
     Dosage: dose increased
     Route: 042
     Dates: end: 2012
  4. REMICADE [Suspect]
     Indication: CROHN^S DISEASE
     Dosage: change in dosage frequency from 7 weeks to 6 weeks
     Route: 042
     Dates: start: 2012

REACTIONS (5)
  - Rheumatoid arthritis [Unknown]
  - Abasia [Unknown]
  - Rheumatoid arthritis [Not Recovered/Not Resolved]
  - Arthralgia [Not Recovered/Not Resolved]
  - Injury associated with device [Unknown]
